FAERS Safety Report 4723838-X (Version None)
Quarter: 2005Q3

REPORT INFORMATION
  Report Type: 
  Country: None (occurrence: None)
  Receive Date: 20050725
  Receipt Date: 20050609
  Transmission Date: 20060218
  Serious: Yes (Other)
  Sender: FDA-Public Use
  Company Number: ES-AMGEN-UK138471

PATIENT
  Sex: Male

DRUGS (7)
  1. NEULASTA [Suspect]
     Indication: CHEMOTHERAPY
     Route: 065
     Dates: start: 20050518
  2. CHLORAMBUCIL [Concomitant]
     Route: 065
  3. RITUXIMAB [Concomitant]
     Route: 065
  4. AMLODIPINE [Concomitant]
     Route: 048
  5. PROPRANOLOL [Concomitant]
     Route: 048
  6. OMEPRAZOLE [Concomitant]
     Route: 048
  7. LORAZEPAM [Concomitant]
     Route: 048

REACTIONS (3)
  - ASTHENIA [None]
  - GASTROINTESTINAL DISORDER [None]
  - HEPATIC FUNCTION ABNORMAL [None]
